FAERS Safety Report 12999715 (Version 5)
Quarter: 2017Q2

REPORT INFORMATION
  Report Type: Report from Study
  Country: CA (occurrence: CA)
  Receive Date: 20161205
  Receipt Date: 20170505
  Transmission Date: 20170830
  Serious: Yes (Other)
  Sender: FDA-Public Use
  Company Number: PHHY2016CA157663

PATIENT
  Sex: Male

DRUGS (3)
  1. TAFINLAR [Suspect]
     Active Substance: DABRAFENIB MESYLATE
     Dosage: 150 MG, BID
     Route: 048
     Dates: start: 20161129, end: 20161213
  2. MEKINIST [Suspect]
     Active Substance: TRAMETINIB DIMETHYL SULFOXIDE
     Indication: METASTATIC MALIGNANT MELANOMA
     Dosage: 2 MG, QD
     Route: 048
     Dates: start: 20161110, end: 20170428
  3. TAFINLAR [Suspect]
     Active Substance: DABRAFENIB MESYLATE
     Indication: METASTATIC MALIGNANT MELANOMA
     Dosage: 300 MG, QD
     Route: 048
     Dates: start: 20161110

REACTIONS (10)
  - Weight decreased [Recovering/Resolving]
  - Chills [Recovered/Resolved]
  - Viral upper respiratory tract infection [Unknown]
  - Dermatitis acneiform [Unknown]
  - Dehydration [Unknown]
  - Hyperhidrosis [Unknown]
  - Pyrexia [Recovered/Resolved]
  - Circulatory collapse [Unknown]
  - Decreased appetite [Recovering/Resolving]
  - Nausea [Unknown]
